FAERS Safety Report 21765535 (Version 2)
Quarter: 2023Q2

REPORT INFORMATION
  Report Type: Spontaneous
  Country: CA (occurrence: CA)
  Receive Date: 20221222
  Receipt Date: 20230515
  Transmission Date: 20230722
  Serious: Yes (Other)
  Sender: FDA-Public Use
  Company Number: None

PATIENT
  Age: 21 Year
  Sex: Male

DRUGS (5)
  1. METHOTREXATE [Suspect]
     Active Substance: METHOTREXATE
     Indication: Prophylaxis against graft versus host disease
  2. TACROLIMUS [Suspect]
     Active Substance: TACROLIMUS
     Indication: Chronic graft versus host disease
  3. CYCLOSPORINE [Suspect]
     Active Substance: CYCLOSPORINE
     Indication: Prophylaxis against graft versus host disease
  4. PREDNISOLONE [Suspect]
     Active Substance: PREDNISOLONE
     Indication: Chronic graft versus host disease
  5. PREDNISOLONE [Suspect]
     Active Substance: PREDNISOLONE
     Indication: Chronic graft versus host disease

REACTIONS (10)
  - Acute graft versus host disease in skin [Not Recovered/Not Resolved]
  - Chronic graft versus host disease in intestine [Unknown]
  - Chronic graft versus host disease in liver [Not Recovered/Not Resolved]
  - Chronic graft versus host disease oral [Not Recovered/Not Resolved]
  - Cytomegalovirus infection reactivation [Not Recovered/Not Resolved]
  - Myositis [Not Recovered/Not Resolved]
  - Thrombotic microangiopathy [Not Recovered/Not Resolved]
  - Chronic graft versus host disease [Not Recovered/Not Resolved]
  - Condition aggravated [Unknown]
  - Off label use [Not Recovered/Not Resolved]
